FAERS Safety Report 10020866 (Version 1)
Quarter: 2014Q1

REPORT INFORMATION
  Report Type: Spontaneous
  Country: US (occurrence: None)
  Receive Date: 20140318
  Receipt Date: 20140318
  Transmission Date: 20141002
  Serious: Yes (Death)
  Sender: FDA-Public Use
  Company Number: None

PATIENT
  Age: 58 Year
  Sex: Female
  Weight: 54.43 kg

DRUGS (1)
  1. ADO-TRASTUZUMAB EMTANSINE [Suspect]

REACTIONS (3)
  - Hypersensitivity [None]
  - Cardiac arrest [None]
  - Oxygen saturation decreased [None]
